FAERS Safety Report 9041051 (Version 1)
Quarter: 2013Q1

REPORT INFORMATION
  Report Type: Spontaneous
  Country: US (occurrence: None)
  Receive Date: 20130124
  Receipt Date: 20130124
  Transmission Date: 20140127
  Serious: Yes (Hospitalization)
  Sender: FDA-Public Use
  Company Number: None

PATIENT
  Sex: Male
  Weight: 63.5 kg

DRUGS (1)
  1. PRAVASTATIN [Suspect]
     Indication: BLOOD CHOLESTEROL INCREASED
     Dosage: 20MG  1 TIME DAILY  ORAL
     Route: 048
     Dates: start: 201209, end: 201211

REACTIONS (8)
  - Dizziness [None]
  - Chest pain [None]
  - Heart rate increased [None]
  - Hypertension [None]
  - Muscle spasms [None]
  - Pain [None]
  - Weight decreased [None]
  - Impaired driving ability [None]
